FAERS Safety Report 4603656-3 (Version None)
Quarter: 2005Q1

REPORT INFORMATION
  Report Type: 
  Country: None (occurrence: None)
  Receive Date: 20050308
  Receipt Date: 20050223
  Transmission Date: 20050727
  Serious: Yes (Hospitalization)
  Sender: FDA-Public Use
  Company Number: 2005037414

PATIENT
  Age: 56 Year
  Sex: Female

DRUGS (2)
  1. CELEBREX [Suspect]
     Indication: ILL-DEFINED DISORDER
  2. REBOXETINE MESYLATE [Suspect]
     Indication: ILL-DEFINED DISORDER
     Dosage: 4 MG (4 MG)
     Dates: start: 20040801

REACTIONS (2)
  - HEPATIC FUNCTION ABNORMAL [None]
  - SYNCOPE [None]
